FAERS Safety Report 11339413 (Version 1)
Quarter: 2015Q3

REPORT INFORMATION
  Report Type: Spontaneous
  Country: US (occurrence: US)
  Receive Date: 20150805
  Receipt Date: 20150805
  Transmission Date: 20151125
  Serious: No
  Sender: FDA-Public Use
  Company Number: US-ASTRAZENECA-2015SE73126

PATIENT
  Age: 62 Year
  Sex: Female

DRUGS (9)
  1. TUDORZA PRESSAIR [Suspect]
     Active Substance: ACLIDINIUM BROMIDE
     Indication: ASTHMA
     Dosage: 400 UG, 1 PUFF, TWO TIMES A DAY
     Route: 055
     Dates: start: 20150707
  2. DIOVAN [Concomitant]
     Active Substance: VALSARTAN
  3. COMBIVENT [Concomitant]
     Active Substance: ALBUTEROL SULFATE\IPRATROPIUM BROMIDE
  4. ALBUTEROL. [Concomitant]
     Active Substance: ALBUTEROL
  5. METFORMIN [Concomitant]
     Active Substance: METFORMIN HYDROCHLORIDE
  6. VITAMIN D3 [Concomitant]
     Active Substance: CHOLECALCIFEROL
  7. CELEBREX [Concomitant]
     Active Substance: CELECOXIB
  8. ZYRTEC [Concomitant]
     Active Substance: CETIRIZINE HYDROCHLORIDE
  9. LIPITOR [Concomitant]
     Active Substance: ATORVASTATIN CALCIUM

REACTIONS (5)
  - Diabetes mellitus [Unknown]
  - Blood cholesterol abnormal [Unknown]
  - Drug dose omission [Not Recovered/Not Resolved]
  - Hypertension [Unknown]
  - Device malfunction [Unknown]

NARRATIVE: CASE EVENT DATE: 20150707
